FAERS Safety Report 5935860-6 (Version None)
Quarter: 2008Q4

REPORT INFORMATION
  Report Type: 
  Country: None (occurrence: None)
  Receive Date: 20081030
  Receipt Date: 20081027
  Transmission Date: 20090506
  Serious: Yes (Death)
  Sender: FDA-Public Use
  Company Number: PHHY2008CA21143

PATIENT
  Sex: Male

DRUGS (11)
  1. CLOZARIL [Suspect]
     Indication: SCHIZOPHRENIA
     Dosage: 600 MG
     Route: 048
     Dates: start: 20010621
  2. ATORVASTATIN [Concomitant]
  3. CLONAZEPAM [Concomitant]
  4. COLACE [Concomitant]
  5. ASCORBIC ACID [Concomitant]
  6. LACTULOSE [Concomitant]
  7. BENZTROPEINE [Concomitant]
  8. HALDOL - SLOW RELEASE [Concomitant]
  9. MULTI-VITAMINS [Concomitant]
  10. SENNOSIDE [Concomitant]
  11. BETAMETHASONE [Concomitant]

REACTIONS (1)
  - CARDIO-RESPIRATORY ARREST [None]
